FAERS Safety Report 10684821 (Version 2)
Quarter: 2015Q1

REPORT INFORMATION
  Report Type: Spontaneous
  Country: AR (occurrence: AR)
  Receive Date: 20141231
  Receipt Date: 20150304
  Transmission Date: 20150720
  Serious: Yes (Other)
  Sender: FDA-Public Use
  Company Number: AR-AMGEN-ARGSP2014101684

PATIENT
  Age: 53 Year
  Sex: Male

DRUGS (1)
  1. ENBREL [Suspect]
     Active Substance: ETANERCEPT
     Indication: ANKYLOSING SPONDYLITIS
     Dosage: 50 MG, WEEKLY
     Route: 065
     Dates: start: 20120208

REACTIONS (3)
  - Intervertebral disc disorder [Not Recovered/Not Resolved]
  - Tendon injury [Unknown]
  - Accident [Not Recovered/Not Resolved]

NARRATIVE: CASE EVENT DATE: 2014
